FAERS Safety Report 4617759-0 (Version None)
Quarter: 2005Q1

REPORT INFORMATION
  Report Type: 
  Country: None (occurrence: None)
  Receive Date: 20050322
  Receipt Date: 20050311
  Transmission Date: 20050727
  Serious: Yes (Disabling)
  Sender: FDA-Public Use
  Company Number: 2005SE01140

PATIENT
  Age: 72 Year
  Sex: Female

DRUGS (4)
  1. SIMESTAT [Suspect]
     Indication: HYPERCHOLESTEROLAEMIA
     Dosage: 10 MG DAILY PO
     Route: 048
     Dates: start: 20040601, end: 20050105
  2. SIMVASTATIN [Suspect]
     Indication: HYPERCHOLESTEROLAEMIA
     Dosage: 40 MG DAILY PO
     Route: 048
     Dates: start: 20040601, end: 20040601
  3. FOLIC ACID [Concomitant]
  4. SERTRALINE HCL [Concomitant]

REACTIONS (12)
  - ANXIETY [None]
  - ASPARTATE AMINOTRANSFERASE INCREASED [None]
  - ASTHENIA [None]
  - BALANCE DISORDER [None]
  - COGNITIVE DISORDER [None]
  - DIFFICULTY IN WALKING [None]
  - DISORIENTATION [None]
  - FEAR OF DISEASE [None]
  - FEELING HOT [None]
  - PSYCHOTIC DISORDER [None]
  - RED BLOOD CELL SEDIMENTATION RATE INCREASED [None]
  - RHABDOMYOLYSIS [None]
